FAERS Safety Report 7500178-7 (Version None)
Quarter: 2011Q2

REPORT INFORMATION
  Report Type: 
  Country: None (occurrence: None)
  Receive Date: 20110524
  Receipt Date: 20110331
  Transmission Date: 20111010
  Serious: No
  Sender: FDA-Public Use
  Company Number: US-NOVEN-11US002154

PATIENT
  Age: 10 Year
  Sex: Male

DRUGS (5)
  1. DAYTRANA [Suspect]
     Indication: ATTENTION DEFICIT/HYPERACTIVITY DISORDER
     Dosage: 30 MG, 1X/DAY:QD
     Route: 062
     Dates: start: 20090101
  2. METHYLPHENIDATE [Concomitant]
     Indication: ATTENTION DEFICIT/HYPERACTIVITY DISORDER
     Dosage: 10 MG, UNK
     Route: 048
  3. GUANFACINE HYDROCHLORIDE [Concomitant]
     Indication: ABNORMAL BEHAVIOUR
     Dosage: UNK
     Route: 048
  4. RISPERDAL [Concomitant]
     Indication: ABNORMAL BEHAVIOUR
     Dosage: UNK
     Route: 048
  5. ZOLOFT [Concomitant]
     Indication: ANXIETY
     Dosage: UNK
     Route: 048

REACTIONS (3)
  - WRONG TECHNIQUE IN DRUG USAGE PROCESS [None]
  - PRODUCT QUALITY ISSUE [None]
  - NO ADVERSE EVENT [None]
